FAERS Safety Report 13728927 (Version 1)
Quarter: 2017Q3

REPORT INFORMATION
  Report Type: Spontaneous
  Country: JP (occurrence: JP)
  Receive Date: 20170707
  Receipt Date: 20170707
  Transmission Date: 20171127
  Serious: Yes (Other)
  Sender: FDA-Public Use
  Company Number: JP-SHIRE-2017BXJ005865

PATIENT
  Sex: Male

DRUGS (4)
  1. BAXJECT II [Suspect]
     Active Substance: DEVICE
     Dosage: UNK, 3X A WEEK, PROPHYLAXIS
     Route: 042
     Dates: start: 200812
  2. ADVATE [Suspect]
     Active Substance: ANTIHEMOPHILIC FACTOR, HUMAN RECOMBINANT
     Dosage: UNK, 3X A WEEK, PROPHYLAXIS
     Route: 042
     Dates: start: 200812
  3. BAXJECT II [Suspect]
     Active Substance: DEVICE
     Indication: HAEMARTHROSIS
     Dosage: UNK, 2X A WEEK, PROPHYLAXIS
     Route: 042
     Dates: start: 200808
  4. ADVATE [Suspect]
     Active Substance: ANTIHEMOPHILIC FACTOR, HUMAN RECOMBINANT
     Indication: HAEMARTHROSIS
     Dosage: UNK, 2X A WEEK, PROPHYLAXIS
     Route: 042
     Dates: start: 200808

REACTIONS (2)
  - Haemarthrosis [Unknown]
  - Haemophilic arthropathy [Unknown]

NARRATIVE: CASE EVENT DATE: 200812
